FAERS Safety Report 5446084-3 (Version None)
Quarter: 2007Q3

REPORT INFORMATION
  Report Type: 
  Country: None (occurrence: None)
  Receive Date: 20070907
  Receipt Date: 20070829
  Transmission Date: 20080115
  Serious: No
  Sender: FDA-Public Use
  Company Number: IE-BAXTER-2007BH007376

PATIENT
  Age: 75 Year
  Sex: Male

DRUGS (1)
  1. IMMUNE GLOBULIN INTRAVENOUS (HUMAN) [Suspect]
     Indication: DRUG USE FOR UNKNOWN INDICATION
     Route: 065
     Dates: start: 20070824, end: 20070824

REACTIONS (2)
  - ACUTE CORONARY SYNDROME [None]
  - TROPONIN INCREASED [None]
